FAERS Safety Report 21446627 (Version 1)
Quarter: 2022Q4

REPORT INFORMATION
  Report Type: Spontaneous
  Country: US (occurrence: None)
  Receive Date: 20221011
  Receipt Date: 20221011
  Transmission Date: 20230113
  Serious: No
  Sender: FDA-Public Use
  Company Number: None

PATIENT
  Age: 79 Year
  Sex: Male
  Weight: 201 kg

DRUGS (1)
  1. MIRABEGRON [Suspect]
     Active Substance: MIRABEGRON
     Indication: Hypertonic bladder
     Dosage: 25 MG EVERY DAY PO?
     Route: 048
     Dates: start: 20220419, end: 20220424

REACTIONS (6)
  - Eosinophilia [None]
  - Leukocytosis [None]
  - Somnolence [None]
  - Flushing [None]
  - Mental status changes [None]
  - Confusional state [None]

NARRATIVE: CASE EVENT DATE: 20220422
